FAERS Safety Report 9302791 (Version 1)
Quarter: 2013Q2

REPORT INFORMATION
  Report Type: Spontaneous
  Country: GB (occurrence: GB)
  Receive Date: 20130522
  Receipt Date: 20130522
  Transmission Date: 20140414
  Serious: Yes (Other)
  Sender: FDA-Public Use
  Company Number: GB-JNJFOC-20130508037

PATIENT
  Age: 79 Year
  Sex: Male
  Weight: 118 kg

DRUGS (8)
  1. XARELTO [Suspect]
     Indication: ATRIAL FIBRILLATION
     Route: 048
     Dates: start: 20130307, end: 20130320
  2. XARELTO [Suspect]
     Indication: CEREBROVASCULAR ACCIDENT PROPHYLAXIS
     Route: 048
     Dates: start: 20130307, end: 20130320
  3. PRAVASTATIN [Concomitant]
     Route: 065
  4. PRAVASTATIN [Concomitant]
     Route: 065
     Dates: start: 20130307, end: 20130320
  5. FUROSEMIDE [Concomitant]
     Route: 065
  6. LOSARTAN [Concomitant]
     Route: 065
  7. BISOPROLOL [Concomitant]
     Route: 065
  8. DIGOXIN [Concomitant]
     Route: 065

REACTIONS (5)
  - Liver function test abnormal [Recovering/Resolving]
  - Blood alkaline phosphatase increased [Unknown]
  - Malaise [Unknown]
  - Alanine aminotransferase increased [Unknown]
  - Blood creatine phosphokinase increased [Unknown]
